FAERS Safety Report 14924694 (Version 1)
Quarter: 2018Q2

REPORT INFORMATION
  Report Type: Spontaneous
  Country: CZ (occurrence: CZ)
  Receive Date: 20180522
  Receipt Date: 20180522
  Transmission Date: 20180711
  Serious: Yes (Other)
  Sender: FDA-Public Use
  Company Number: CZ-TEVA-2018-CZ-894010

PATIENT
  Age: 62 Year
  Sex: Male

DRUGS (6)
  1. BETALOC 25 [Concomitant]
     Route: 065
  2. DESLORATADIN ACTAVIS [Concomitant]
     Active Substance: DESLORATADINE
     Route: 065
  3. PIRAMIL 2.5 [Concomitant]
     Route: 065
  4. DIAZEPAM. [Concomitant]
     Active Substance: DIAZEPAM
     Route: 065
  5. METFORMIN [Suspect]
     Active Substance: METFORMIN HYDROCHLORIDE
     Route: 065
     Dates: start: 20180305
  6. STILNOX [Concomitant]
     Active Substance: ZOLPIDEM TARTRATE
     Route: 065

REACTIONS (7)
  - Visual impairment [Unknown]
  - Blood glucose fluctuation [Recovering/Resolving]
  - Abdominal pain [Unknown]
  - Seizure [Unknown]
  - Dyspnoea exertional [Unknown]
  - Diarrhoea [Unknown]
  - Headache [Unknown]
